FAERS Safety Report 8836049 (Version 1)
Quarter: 2012Q4

REPORT INFORMATION
  Report Type: 
  Country: US (occurrence: US)
  Receive Date: 20121011
  Receipt Date: 20121011
  Transmission Date: 20130627
  Serious: Yes (Other)
  Sender: FDA-Public Use
  Company Number: US-ELI_LILLY_AND_COMPANY-US201210000567

PATIENT
  Sex: Female

DRUGS (3)
  1. BYDUREON [Suspect]
     Dosage: 2 mg, UNK
     Route: 058
     Dates: end: 20120827
  2. BYETTA [Suspect]
     Dosage: UNK
     Route: 058
  3. BYETTA [Suspect]
     Dosage: UNK
     Route: 058

REACTIONS (1)
  - Swelling face [Unknown]
